FAERS Safety Report 8762489 (Version 1)
Quarter: 2012Q4

REPORT INFORMATION
  Report Type: 
  Country: US (occurrence: US)
  Receive Date: 20120829
  Receipt Date: 20120829
  Transmission Date: 20130627
  Serious: No
  Sender: FDA-Public Use
  Company Number: US-PFIZER INC-2012208387

PATIENT
  Sex: Male

DRUGS (1)
  1. ZARONTIN [Suspect]
     Dosage: 1 1/2 tsp, twice daily
     Route: 048

REACTIONS (1)
  - Cheilitis [Unknown]
